FAERS Safety Report 17853880 (Version 1)
Quarter: 2020Q2

REPORT INFORMATION
  Report Type: Spontaneous
  Country: NL (occurrence: NL)
  Receive Date: 20200603
  Receipt Date: 20200603
  Transmission Date: 20200714
  Serious: Yes (Other)
  Sender: FDA-Public Use
  Company Number: NL-SUN PHARMACEUTICAL INDUSTRIES LTD-2020RR-249112

PATIENT
  Age: 75 Year
  Sex: Female
  Weight: 62 kg

DRUGS (6)
  1. LISINOPRILLISINOPRIL TABLET 20MG [Concomitant]
     Indication: PRODUCT USED FOR UNKNOWN INDICATION
     Dosage: TABLET, 20 MG (MILLIGRAM)
     Route: 065
  2. METOPROLOLSUCCINAATMETOPROLOL TABLET MGA 100MG (SUCCINAAT) [Concomitant]
     Indication: PRODUCT USED FOR UNKNOWN INDICATION
     Dosage: TABLET 100 MG
     Route: 065
  3. PREGABALIN. [Suspect]
     Active Substance: PREGABALIN
     Indication: PAIN
     Dosage: 2X PER DAG 1 CAPSULE
     Route: 065
     Dates: start: 20200227, end: 20200325
  4. MAAGZUURTABLET PANTOPRAZOL SAM (PANTOPRAZOL)PANTOPRAZOL TABLET MSR ... [Concomitant]
     Indication: PRODUCT USED FOR UNKNOWN INDICATION
     Dosage: 40 MG
     Route: 065
  5. OXYCODONOXYCODON TABLET MGA 10MG [Suspect]
     Active Substance: OXYCODONE
     Indication: PAIN
     Dosage: 2X PER DAG 1 TABLET
     Route: 065
     Dates: start: 20200316, end: 20200325
  6. LIXIANA (EDOXABAN)LIXIANA TABLET FILMOMHULD 60MGEDOXABAN TABLET 60MG [Concomitant]
     Indication: PRODUCT USED FOR UNKNOWN INDICATION
     Dosage: TABLET, 60 MG (MILLIGRAM)
     Route: 065

REACTIONS (6)
  - Retching [Recovered/Resolved]
  - Joint swelling [Recovered/Resolved]
  - Respiratory distress [Recovered/Resolved]
  - Decreased appetite [Recovered/Resolved]
  - Sleep attacks [Recovered/Resolved]
  - Nausea [Recovered/Resolved]

NARRATIVE: CASE EVENT DATE: 20200325
